FAERS Safety Report 21852341 (Version 1)
Quarter: 2023Q1

REPORT INFORMATION
  Report Type: Spontaneous
  Country: IT (occurrence: IT)
  Receive Date: 20230112
  Receipt Date: 20230112
  Transmission Date: 20230418
  Serious: Yes (Other)
  Sender: FDA-Public Use
  Company Number: IT-CELLTRION INC.-2023IT000426

PATIENT

DRUGS (5)
  1. RITUXIMAB [Suspect]
     Active Substance: RITUXIMAB
     Indication: Nodal marginal zone B-cell lymphoma stage IV
     Dosage: UNK, CYCLE (RECEIVED UNDER FIRST LINE R-CHOP IMMUNO-CHEMOTHERAPY)
     Dates: start: 2010
  2. PREDNISONE [Suspect]
     Active Substance: PREDNISONE
     Indication: Nodal marginal zone B-cell lymphoma stage IV
     Dosage: UNK, CYCLE (RECEIVED UNDER FIRST LINE R-CHOP  IMMUNO-CHEMOTHERAPY)
     Dates: start: 2010
  3. VINCRISTINE [Suspect]
     Active Substance: VINCRISTINE
     Indication: Nodal marginal zone B-cell lymphoma stage IV
     Dosage: UNK UNK, CYCLE, RECEIVED UNDER FIRST LINE ?.
     Dates: start: 2010
  4. CYCLOPHOSPHAMIDE [Suspect]
     Active Substance: CYCLOPHOSPHAMIDE
     Indication: Nodal marginal zone B-cell lymphoma stage IV
     Dosage: UNK, CYCLE (RECEIVED UNDER FIRST LINE R-CHOP IMMUNO-CHEMOTHERAPY)
     Dates: start: 2010
  5. EPIRUBICIN [Suspect]
     Active Substance: EPIRUBICIN
     Indication: Nodal marginal zone B-cell lymphoma stage IV
     Dosage: UNK, CYCLE (RECEIVED UNDER FIRST LINE R-CHOP IMMUNO-CHEMOTHERAPY)
     Dates: start: 2010

REACTIONS (4)
  - Disease progression [Unknown]
  - Drug ineffective [Unknown]
  - Neutropenia [Unknown]
  - Off label use [Unknown]

NARRATIVE: CASE EVENT DATE: 20180401
